FAERS Safety Report 9848714 (Version 1)
Quarter: 2013Q4

REPORT INFORMATION
  Report Type: Spontaneous
  Country: US (occurrence: None)
  Receive Date: 20131224
  Receipt Date: 20131224
  Transmission Date: 20140711
  Serious: Yes (Other)
  Sender: FDA-Public Use
  Company Number: PHEH2013US012820

PATIENT
  Age: 52 Year
  Sex: Male

DRUGS (11)
  1. CLOZARIL (CLOZAPINE) UNKNOWN [Suspect]
  2. PRILOSEC (OMEPRAZOLE), 20 MG [Concomitant]
  3. SEROQUEL (QUETIAPINE FUMARATE) [Concomitant]
  4. EFFEXOR (VENLAFAXINE HYDROCHLORIDE) UNKNOWN [Concomitant]
  5. HALDOL (HALOPERIDOL DECANOATE) [Concomitant]
  6. NEURONTIN (GABAPENTIN) [Concomitant]
  7. DILANTIN SODIUM (PHENYTOIN SODIUM) [Concomitant]
  8. ZOCOR (SIMVASTATIN) [Concomitant]
  9. KEPPRA (LEVETIRACETAM) [Concomitant]
  10. ASA (ACETYLSALICYLIC ACID) ENTERIC-FILM-COATED TABLET [Concomitant]
  11. ALBUTEROL (SALBUTAMOL) [Concomitant]

REACTIONS (8)
  - Anaemia [None]
  - Blood count abnormal [None]
  - Haematocrit decreased [None]
  - Haemoglobin decreased [None]
  - Mean cell haemoglobin decreased [None]
  - Mean cell volume decreased [None]
  - Red cell distribution width increased [None]
  - Mean cell haemoglobin concentration decreased [None]
